FAERS Safety Report 7527045-7 (Version None)
Quarter: 2011Q2

REPORT INFORMATION
  Report Type: 
  Country: None (occurrence: None)
  Receive Date: 20110606
  Receipt Date: 20110530
  Transmission Date: 20111010
  Serious: Yes (Death)
  Sender: FDA-Public Use
  Company Number: JP-ALLERGAN-1107346US

PATIENT
  Age: 8 Year
  Sex: Female

DRUGS (1)
  1. BOTOX [Suspect]
     Indication: TORTICOLLIS
     Dosage: 15 UNITS, SINGLE
     Route: 030
     Dates: start: 20110512, end: 20110512

REACTIONS (1)
  - PNEUMONIA [None]
